FAERS Safety Report 7524582-6 (Version None)
Quarter: 2011Q2

REPORT INFORMATION
  Report Type: 
  Country: None (occurrence: None)
  Receive Date: 20110525
  Receipt Date: 20110513
  Transmission Date: 20111010
  Serious: Yes (Death, Life-Threatening)
  Sender: FDA-Public Use
  Company Number: 923232

PATIENT
  Age: 81 Year
  Sex: Male

DRUGS (8)
  1. INDAPAMIDE [Concomitant]
  2. ZOPHREN [Concomitant]
  3. METFORMIN HCL [Concomitant]
  4. FASTURTEC [Concomitant]
  5. NITROGLYCERIN [Concomitant]
  6. PENTOSTATIN [Suspect]
     Indication: HAIRY CELL LEUKAEMIA
     Dosage: INTRAVENOUS
     Route: 042
     Dates: start: 20100101, end: 20110224
  7. GLICAZIDA [Concomitant]
  8. ALLOPURINOL [Concomitant]

REACTIONS (16)
  - NEOPLASM MALIGNANT [None]
  - DISSEMINATED INTRAVASCULAR COAGULATION [None]
  - TUBULOINTERSTITIAL NEPHRITIS [None]
  - HYPOTENSION [None]
  - ACUTE HEPATIC FAILURE [None]
  - PULMONARY HAEMORRHAGE [None]
  - SEPTIC SHOCK [None]
  - MULTI-ORGAN FAILURE [None]
  - RENAL FAILURE ACUTE [None]
  - CHILLS [None]
  - HAIRY CELL LEUKAEMIA [None]
  - ACUTE RESPIRATORY DISTRESS SYNDROME [None]
  - HISTIOCYTOSIS HAEMATOPHAGIC [None]
  - LUNG INFECTION [None]
  - GENERAL PHYSICAL HEALTH DETERIORATION [None]
  - PURULENCE [None]
